FAERS Safety Report 8786220 (Version 2)
Quarter: 2013Q4

REPORT INFORMATION
  Report Type: Spontaneous
  Country: US (occurrence: US)
  Receive Date: 20120914
  Receipt Date: 20131101
  Transmission Date: 20140711
  Serious: Yes (Disabling)
  Sender: FDA-Public Use
  Company Number: US-009507513-1209USA003529

PATIENT
  Sex: Female

DRUGS (4)
  1. ISENTRESS [Suspect]
     Route: 048
  2. PREZISTA [Suspect]
     Route: 048
  3. INTELENCE [Suspect]
     Route: 048
  4. NORVIR [Concomitant]
     Route: 048

REACTIONS (2)
  - Arthralgia [Unknown]
  - Off label use [Unknown]
